FAERS Safety Report 4478461-1 (Version None)
Quarter: 2004Q4

REPORT INFORMATION
  Report Type: 
  Country: None (occurrence: None)
  Receive Date: 20041013
  Receipt Date: 20040930
  Transmission Date: 20050328
  Serious: Yes (Hospitalization)
  Sender: FDA-Public Use
  Company Number: 2004072648

PATIENT
  Sex: Female

DRUGS (2)
  1. ZELDOX [Suspect]
     Indication: ILL-DEFINED DISORDER
  2. CLOPAZINE (CLOPAZINE) [Concomitant]

REACTIONS (1)
  - NEUROLEPTIC MALIGNANT SYNDROME [None]
